FAERS Safety Report 6290668-X (Version None)
Quarter: 2009Q3

REPORT INFORMATION
  Report Type: 
  Country: None (occurrence: None)
  Receive Date: 20090730
  Receipt Date: 20090721
  Transmission Date: 20100115
  Serious: Yes (Other)
  Sender: FDA-Public Use
  Company Number: PHHY2009MX30475

PATIENT
  Sex: Female

DRUGS (4)
  1. ACLASTA [Suspect]
     Indication: OSTEOPOROSIS
     Dosage: 1 INFUSION (5MG/100ML) PER YEAR
     Dates: start: 20080913
  2. ATACAND HCT [Concomitant]
  3. TEBONIN [Concomitant]
  4. ZALDIAR [Concomitant]

REACTIONS (3)
  - DIVERTICULUM [None]
  - FOOT FRACTURE [None]
  - HYPOTHYROIDISM [None]
